FAERS Safety Report 20898485 (Version 2)
Quarter: 2022Q2

REPORT INFORMATION
  Report Type: Spontaneous
  Country: AU (occurrence: NZ)
  Receive Date: 20220601
  Receipt Date: 20220621
  Transmission Date: 20220721
  Serious: Yes (Other)
  Sender: FDA-Public Use
  Company Number: AU-JNJFOC-20220556843

PATIENT
  Age: 30 Year
  Sex: Female
  Weight: 65 kg

DRUGS (4)
  1. INVEGA SUSTENNA [Suspect]
     Active Substance: PALIPERIDONE PALMITATE
     Indication: Schizophrenia
     Route: 030
     Dates: start: 2021
  2. INVEGA SUSTENNA [Suspect]
     Active Substance: PALIPERIDONE PALMITATE
  3. INVEGA SUSTENNA [Suspect]
     Active Substance: PALIPERIDONE PALMITATE
  4. NALTREXONE [Concomitant]
     Active Substance: NALTREXONE
     Indication: Alcohol abuse

REACTIONS (8)
  - Intellectual disability [Unknown]
  - Paraesthesia [Recovered/Resolved]
  - Weight increased [Unknown]
  - Apathy [Unknown]
  - Hyperphagia [Unknown]
  - Neck pain [Unknown]
  - Arthralgia [Unknown]
  - Product administered at inappropriate site [Unknown]
